FAERS Safety Report 11176597 (Version 1)
Quarter: 2015Q2

REPORT INFORMATION
  Report Type: Spontaneous
  Country: CA (occurrence: CA)
  Receive Date: 20150610
  Receipt Date: 20150610
  Transmission Date: 20150821
  Serious: Yes (Disabling)
  Sender: FDA-Public Use
  Company Number: CA-TEVA-568564ACC

PATIENT
  Age: 73 Year
  Sex: Female
  Weight: 116.22 kg

DRUGS (1)
  1. PREGABALIN. [Suspect]
     Active Substance: PREGABALIN
     Indication: NEUROPATHY PERIPHERAL
     Dosage: 300 MILLIGRAM DAILY;
     Route: 048

REACTIONS (4)
  - Discomfort [Unknown]
  - Product substitution issue [Unknown]
  - Drug ineffective [Unknown]
  - Sleep disorder [Unknown]
